FAERS Safety Report 8310513-8 (Version None)
Quarter: 2012Q2

REPORT INFORMATION
  Report Type: 
  Country: None (occurrence: None)
  Receive Date: 20120425
  Receipt Date: 20120416
  Transmission Date: 20120825
  Serious: Yes (Other)
  Sender: FDA-Public Use
  Company Number: CA-JNJFOC-20120407696

PATIENT
  Sex: Male
  Weight: 79 kg

DRUGS (3)
  1. REMICADE [Suspect]
     Indication: CROHN'S DISEASE
     Route: 042
     Dates: start: 20060613
  2. MULTIVITES [Concomitant]
     Route: 065
  3. PANTOPRAZOLE SODIUM [Concomitant]
     Route: 065

REACTIONS (1)
  - SPINAL FRACTURE [None]
